FAERS Safety Report 4769116-4 (Version None)
Quarter: 2005Q3

REPORT INFORMATION
  Report Type: 
  Country: None (occurrence: None)
  Receive Date: 20050912
  Receipt Date: 20050421
  Transmission Date: 20060218
  Serious: Yes (Hospitalization)
  Sender: FDA-Public Use
  Company Number: 2005-BP-06591BP

PATIENT
  Age: 49 Year
  Sex: Male
  Weight: 92.7 kg

DRUGS (7)
  1. VIRAMUNE [Suspect]
     Indication: HIV INFECTION
     Dosage: 400 MG (200 MG, 1 IN 2 D)
     Dates: start: 20050203, end: 20050401
  2. PAMELOR [Concomitant]
  3. FLONASE [Concomitant]
  4. COMBIVIR [Concomitant]
  5. VASOTEC [Concomitant]
  6. GABAPENTIN [Concomitant]
  7. LOPRESSOR [Concomitant]

REACTIONS (4)
  - FATIGUE [None]
  - HEPATIC ENZYME INCREASED [None]
  - JAUNDICE [None]
  - NAUSEA [None]
